FAERS Safety Report 7710747-7 (Version None)
Quarter: 2011Q3

REPORT INFORMATION
  Report Type: 
  Country: None (occurrence: None)
  Receive Date: 20110825
  Receipt Date: 20110816
  Transmission Date: 20111222
  Serious: Yes (Other)
  Sender: FDA-Public Use
  Company Number: PHHY2011US51097

PATIENT
  Sex: Male

DRUGS (5)
  1. DIOVAN [Concomitant]
     Indication: BLOOD PRESSURE
  2. NEXIUM [Concomitant]
     Indication: GASTROOESOPHAGEAL REFLUX DISEASE
  3. DEPAKOTE [Concomitant]
     Indication: MIGRAINE
  4. GILENYA [Suspect]
     Indication: MULTIPLE SCLEROSIS
     Dosage: 0.5 MG, DAILY
     Route: 048
     Dates: start: 20101123
  5. METFORMIN HCL [Concomitant]
     Indication: BLOOD GLUCOSE

REACTIONS (6)
  - DECREASED APPETITE [None]
  - BLOOD URINE PRESENT [None]
  - DYSPEPSIA [None]
  - HAEMATEMESIS [None]
  - WEIGHT DECREASED [None]
  - HAEMATOCHEZIA [None]
